FAERS Safety Report 6294484-4 (Version None)
Quarter: 2009Q3

REPORT INFORMATION
  Report Type: 
  Country: None (occurrence: None)
  Receive Date: 20090730
  Receipt Date: 20090727
  Transmission Date: 20100115
  Serious: Yes (Other)
  Sender: FDA-Public Use
  Company Number: 2008SP016546

PATIENT
  Age: 22 Year
  Sex: Male
  Weight: 63.1 kg

DRUGS (3)
  1. PEG-INTRON [Suspect]
     Indication: BONE SARCOMA
     Dosage: 0.5 MCG/KG;QW;SC; 1 MCG/KG;QW;SC; 64 MCG
     Route: 058
     Dates: start: 20080722, end: 20080722
  2. PEG-INTRON [Suspect]
     Indication: BONE SARCOMA
     Dosage: 0.5 MCG/KG;QW;SC; 1 MCG/KG;QW;SC; 64 MCG
     Route: 058
     Dates: start: 20080730, end: 20080730
  3. PEG-INTRON [Suspect]
     Indication: BONE SARCOMA
     Dosage: 0.5 MCG/KG;QW;SC; 1 MCG/KG;QW;SC; 64 MCG
     Route: 058
     Dates: start: 20080314

REACTIONS (1)
  - MANIA [None]
